FAERS Safety Report 16531844 (Version 1)
Quarter: 2019Q3

REPORT INFORMATION
  Report Type: Spontaneous
  Country: US (occurrence: US)
  Receive Date: 20190705
  Receipt Date: 20190705
  Transmission Date: 20191004
  Serious: Yes (Hospitalization)
  Sender: FDA-Public Use
  Company Number: US-PARI RESPIRATORY EQUIPMENT, INC.-2019PAR00062

PATIENT
  Age: 20 Year
  Sex: Female

DRUGS (2)
  1. KITABIS PAK [Suspect]
     Active Substance: TOBRAMYCIN
     Indication: CYSTIC FIBROSIS
     Dosage: 1 DOSAGE UNITS, 2X/DAY (EVERY 12 HOURS; 28 DAYS ON AND 28 DAYS OFF)
     Dates: start: 201805
  2. SYMDEKO [Suspect]
     Active Substance: IVACAFTOR\TEZACAFTOR
     Indication: CYSTIC FIBROSIS
     Dosage: 1 TABLETS, 2X/DAY
     Route: 048
     Dates: start: 201807

REACTIONS (3)
  - Weight decreased [Unknown]
  - Sputum increased [Unknown]
  - Cough [Unknown]
